FAERS Safety Report 10090508 (Version 1)
Quarter: 2014Q2

REPORT INFORMATION
  Report Type: Spontaneous
  Country: JP (occurrence: JP)
  Receive Date: 20140421
  Receipt Date: 20140421
  Transmission Date: 20141212
  Serious: Yes (Other)
  Sender: FDA-Public Use
  Company Number: JP-ASTRAZENECA-2014SE25447

PATIENT
  Age: 68 Year
  Sex: Female

DRUGS (2)
  1. XYLOCAINE OPHTHALMIC [Suspect]
     Indication: LOCAL ANAESTHESIA
     Dosage: DOSE UNKNOWN
     Route: 047
  2. POVIDONE-IODINE [Concomitant]
     Indication: INFECTION PROPHYLAXIS
     Dosage: DOSE UNKNOWN
     Route: 065

REACTIONS (3)
  - Toxic anterior segment syndrome [Unknown]
  - Glaucoma [Unknown]
  - Keratopathy [Unknown]
